FAERS Safety Report 6470805-4 (Version None)
Quarter: 2009Q4

REPORT INFORMATION
  Report Type: 
  Country: None (occurrence: None)
  Receive Date: 20091203
  Receipt Date: 20090406
  Transmission Date: 20100525
  Serious: No
  Sender: FDA-Public Use
  Company Number: US-ABBOTT-09P-163-0566604-00

PATIENT
  Sex: Female
  Weight: 71.732 kg

DRUGS (4)
  1. MERIDIA [Suspect]
     Indication: WEIGHT DECREASED
     Route: 048
     Dates: start: 20071201, end: 20080401
  2. MERIDIA [Suspect]
     Indication: BLOOD CHOLESTEROL
     Route: 048
     Dates: start: 20080402, end: 20080405
  3. CETAPHIL [Concomitant]
     Indication: ECZEMA
     Route: 061
  4. PRAVASTATIN [Concomitant]
     Indication: BLOOD CHOLESTEROL
     Route: 048

REACTIONS (4)
  - ALOPECIA [None]
  - ECZEMA [None]
  - RASH ERYTHEMATOUS [None]
  - SKIN WARM [None]
